FAERS Safety Report 12793814 (Version 1)
Quarter: 2016Q3

REPORT INFORMATION
  Report Type: Spontaneous
  Country: US (occurrence: US)
  Receive Date: 20160929
  Receipt Date: 20160929
  Transmission Date: 20161109
  Serious: No
  Sender: FDA-Public Use
  Company Number: US-JAZZ-2016-US-011783

PATIENT
  Sex: Female

DRUGS (20)
  1. XYREM [Suspect]
     Active Substance: SODIUM OXYBATE
     Indication: CATAPLEXY
     Dosage: 4.5 G, FIRST DOSE
     Route: 048
     Dates: start: 201102, end: 201104
  2. VITAMIN B COMPLEX [Concomitant]
     Active Substance: CYANOCOBALAMIN\DEXPANTHENOL\NIACINAMIDE\PYRIDOXINE HYDROCHLORIDE\RIBOFLAVIN 5^-PHOSPHATE SODIUM\THIAMINE HYDROCHLORIDE\VITAMIN B COMPLEX
  3. DIAZEPAM. [Concomitant]
     Active Substance: DIAZEPAM
  4. VITAMIN D [Concomitant]
     Active Substance: CHOLECALCIFEROL
  5. XYREM [Suspect]
     Active Substance: SODIUM OXYBATE
     Indication: NARCOLEPSY
     Dosage: 4.5 G, BID
     Route: 048
     Dates: start: 201007, end: 201102
  6. XYREM [Suspect]
     Active Substance: SODIUM OXYBATE
     Dosage: 4.5 G, BID
     Route: 048
     Dates: start: 201104
  7. ALLEGRA ALLERGY [Concomitant]
     Active Substance: FEXOFENADINE HYDROCHLORIDE
  8. ADDERALL [Concomitant]
     Active Substance: AMPHETAMINE ASPARTATE\AMPHETAMINE SULFATE\DEXTROAMPHETAMINE SACCHARATE\DEXTROAMPHETAMINE SULFATE
  9. IMITREX [Concomitant]
     Active Substance: SUMATRIPTAN SUCCINATE
  10. MAGNESIUM [Concomitant]
     Active Substance: MAGNESIUM
  11. MVI [Concomitant]
     Active Substance: VITAMINS
  12. TRILEPTAL [Concomitant]
     Active Substance: OXCARBAZEPINE
  13. LUNESTA [Concomitant]
     Active Substance: ESZOPICLONE
  14. HYDROCHLOROTHIAZID [Concomitant]
     Active Substance: HYDROCHLOROTHIAZIDE
  15. NEURONTIN [Concomitant]
     Active Substance: GABAPENTIN
  16. OMEGA 3 [Concomitant]
     Active Substance: OMEGA-3 FATTY ACIDS
  17. S-ADENOSYLMETHIONINE SULFATE P-TOLUENESULFONATE [Concomitant]
     Active Substance: ADEMETIONINE SULFATE TOSILATE
  18. XYREM [Suspect]
     Active Substance: SODIUM OXYBATE
     Dosage: 3.75 G, SECOND DOSE
     Route: 048
     Dates: start: 201102, end: 201104
  19. BENADRYL ALLERGY [Concomitant]
     Active Substance: DIPHENHYDRAMINE HYDROCHLORIDE
  20. MOBIC [Concomitant]
     Active Substance: MELOXICAM

REACTIONS (3)
  - Abnormal sleep-related event [Unknown]
  - Pain [Not Recovered/Not Resolved]
  - Hypotension [Recovering/Resolving]
